FAERS Safety Report 10989834 (Version 1)
Quarter: 2015Q2

REPORT INFORMATION
  Report Type: Report from Study
  Country: CA (occurrence: CA)
  Receive Date: 20150406
  Receipt Date: 20150406
  Transmission Date: 20150821
  Serious: Yes (Other)
  Sender: FDA-Public Use
  Company Number: CA-JNJFOC-20150402062

PATIENT
  Age: 52 Year
  Sex: Male
  Weight: 240 kg

DRUGS (6)
  1. ADALAT [Concomitant]
     Active Substance: NIFEDIPINE
     Dosage: X L 30 (UNITS UNSPECIFIED)
     Route: 065
  2. EURO D [Concomitant]
     Dosage: EURO D 1000
     Route: 065
  3. ARIPIPRAZOLE. [Concomitant]
     Active Substance: ARIPIPRAZOLE
     Dosage: 30 (UNITS UNSPECIFIED)
     Route: 065
  4. REMICADE [Suspect]
     Active Substance: INFLIXIMAB
     Indication: RHEUMATOID ARTHRITIS
     Dosage: ^4/52^
     Route: 042
     Dates: start: 200404
  5. MTX [Concomitant]
     Active Substance: METHOTREXATE SODIUM
     Route: 065
  6. RAMIPRIL. [Concomitant]
     Active Substance: RAMIPRIL
     Dosage: 10 (UNITS UNSPECIFIED)
     Route: 065

REACTIONS (1)
  - Asthma [Recovered/Resolved]

NARRATIVE: CASE EVENT DATE: 20150315
